FAERS Safety Report 14776160 (Version 2)
Quarter: 2018Q2

REPORT INFORMATION
  Report Type: Spontaneous
  Country: US (occurrence: US)
  Receive Date: 20180418
  Receipt Date: 20180508
  Transmission Date: 20180711
  Serious: No
  Sender: FDA-Public Use
  Company Number: US-009507513-1804USA007879

PATIENT
  Sex: Female

DRUGS (3)
  1. FOLLISTIM [Suspect]
     Active Substance: FOLLITROPIN
     Dosage: STRENGTH: 300 U
     Dates: start: 20180415, end: 20180415
  2. FOLLISTIM [Suspect]
     Active Substance: FOLLITROPIN
     Dosage: STRENGTH: 300 U
     Dates: start: 20180414, end: 20180414
  3. FOLLISTIM [Suspect]
     Active Substance: FOLLITROPIN
     Dosage: STRENGTH: 300 U
     Dates: start: 20180416

REACTIONS (3)
  - Intentional product misuse [Unknown]
  - Product storage error [Unknown]
  - No adverse event [Unknown]

NARRATIVE: CASE EVENT DATE: 20180414
